APPROVED DRUG PRODUCT: AMINOSYN 3.5% IN PLASTIC CONTAINER
Active Ingredient: AMINO ACIDS
Strength: 3.5% (3.5GM/100ML)
Dosage Form/Route: INJECTABLE;INJECTION
Application: N018804 | Product #001
Applicant: ABBOTT LABORATORIES PHARMACEUTICAL PRODUCTS DIV
Approved: May 15, 1984 | RLD: No | RS: No | Type: DISCN